FAERS Safety Report 15366129 (Version 2)
Quarter: 2018Q4

REPORT INFORMATION
  Report Type: Spontaneous
  Country: US (occurrence: US)
  Receive Date: 20180910
  Receipt Date: 20181031
  Transmission Date: 20190204
  Serious: No
  Sender: FDA-Public Use
  Company Number: US-ASTRAZENECA-2018SF06981

PATIENT
  Age: 14646 Day
  Sex: Female
  Weight: 83.5 kg

DRUGS (6)
  1. LYNPARZA [Suspect]
     Active Substance: OLAPARIB
     Indication: MALIGNANT PERITONEAL NEOPLASM
     Dosage: 150 MG TWO TIMES A DAY
     Route: 048
     Dates: start: 20180609, end: 20180820
  2. LYNPARZA [Suspect]
     Active Substance: OLAPARIB
     Indication: RETROPERITONEAL CANCER
     Dosage: 300 MG TWO TIMES A DAY
     Route: 048
     Dates: start: 20180710
  3. LYNPARZA [Suspect]
     Active Substance: OLAPARIB
     Indication: OVARIAN CANCER
     Dosage: 150 MG TWO TIMES A DAY
     Route: 048
     Dates: start: 20180609, end: 20180820
  4. LYNPARZA [Suspect]
     Active Substance: OLAPARIB
     Indication: RETROPERITONEAL CANCER
     Dosage: 150 MG TWO TIMES A DAY
     Route: 048
     Dates: start: 20180609, end: 20180820
  5. LYNPARZA [Suspect]
     Active Substance: OLAPARIB
     Indication: OVARIAN CANCER
     Dosage: 300 MG TWO TIMES A DAY
     Route: 048
     Dates: start: 20180710
  6. LYNPARZA [Suspect]
     Active Substance: OLAPARIB
     Indication: MALIGNANT PERITONEAL NEOPLASM
     Dosage: 300 MG TWO TIMES A DAY
     Route: 048
     Dates: start: 20180710

REACTIONS (7)
  - Contusion [Recovered/Resolved]
  - Neuropathy peripheral [Not Recovered/Not Resolved]
  - Fall [Not Recovered/Not Resolved]
  - Alopecia [Not Recovered/Not Resolved]
  - Ecchymosis [Not Recovered/Not Resolved]
  - Rash [Not Recovered/Not Resolved]
  - Tumour marker increased [Not Recovered/Not Resolved]

NARRATIVE: CASE EVENT DATE: 20180818
